FAERS Safety Report 7756698-3 (Version None)
Quarter: 2011Q3

REPORT INFORMATION
  Report Type: 
  Country: None (occurrence: None)
  Receive Date: 20110915
  Receipt Date: 20110915
  Transmission Date: 20111222
  Serious: No
  Sender: FDA-Public Use
  Company Number: None

PATIENT
  Sex: Male
  Weight: 81.6475 kg

DRUGS (1)
  1. LEVAQUIN [Suspect]
     Indication: INFECTION
     Dosage: 750MG QDAY PO (ORALLY)
     Route: 048
     Dates: start: 20110729

REACTIONS (9)
  - GAIT DISTURBANCE [None]
  - INSOMNIA [None]
  - MUSCLE TWITCHING [None]
  - HYPERHIDROSIS [None]
  - ANXIETY [None]
  - SENSORY DISTURBANCE [None]
  - DIZZINESS [None]
  - PERONEAL NERVE PALSY [None]
  - MYALGIA [None]
